FAERS Safety Report 4601654-7 (Version None)
Quarter: 2005Q1

REPORT INFORMATION
  Report Type: 
  Country: None (occurrence: None)
  Receive Date: 20050308
  Receipt Date: 20050301
  Transmission Date: 20050727
  Serious: Yes (Hospitalization)
  Sender: FDA-Public Use
  Company Number: GB-BRISTOL-MYERS SQUIBB COMPANY-12881298

PATIENT
  Age: 46 Year
  Sex: Female

DRUGS (4)
  1. CYCLOPHOSPHAMIDE [Suspect]
     Indication: BREAST CANCER
     Dates: end: 20041230
  2. PACLITAXEL [Suspect]
     Indication: BREAST CANCER
     Dates: end: 20050121
  3. EPIRUBICIN [Suspect]
     Indication: BREAST CANCER
     Dates: end: 20041230
  4. ZIMOVANE [Concomitant]
     Indication: SEDATION
     Dates: start: 20041201

REACTIONS (2)
  - CHEST PAIN [None]
  - DYSPHONIA [None]
